FAERS Safety Report 25916174 (Version 1)
Quarter: 2025Q4

REPORT INFORMATION
  Report Type: Spontaneous
  Country: EU (occurrence: EU)
  Receive Date: 20251014
  Receipt Date: 20251014
  Transmission Date: 20260117
  Serious: Yes (Hospitalization, Other)
  Sender: ACCORD
  Company Number: None

PATIENT
  Age: 58 Year
  Sex: Female

DRUGS (7)
  1. CLOZAPINE [Suspect]
     Active Substance: CLOZAPINE
     Indication: Suicide attempt
     Dosage: 56 TABLETS
     Dates: start: 20250713, end: 20250713
  2. HALDOL [Concomitant]
     Active Substance: HALOPERIDOL
     Dosage: 25 DROPS X 2/DAY
  3. VALPROATE SODIUM [Concomitant]
     Active Substance: VALPROATE SODIUM
     Dosage: 300 MG, 1 TABLET X 2 /DAY
  4. Elopram [Concomitant]
     Dosage: 4 DROPS/DAY
  5. TALOFEN [Concomitant]
     Active Substance: PROMAZINE HYDROCHLORIDE
     Dosage: 10 DROPS/DAY
  6. HALCION [Concomitant]
     Active Substance: TRIAZOLAM
  7. FLUIMUCIL [Concomitant]
     Active Substance: ACETYLCYSTEINE
     Dosage: 1 SACHET PER DAY

REACTIONS (3)
  - Cholinergic syndrome [Recovering/Resolving]
  - Pneumonitis [Recovering/Resolving]
  - Drug abuse [Recovering/Resolving]

NARRATIVE: CASE EVENT DATE: 20250713
